FAERS Safety Report 10591483 (Version 1)
Quarter: 2014Q4

REPORT INFORMATION
  Report Type: Spontaneous
  Country: IL (occurrence: IL)
  Receive Date: 20141118
  Receipt Date: 20141118
  Transmission Date: 20150529
  Serious: Yes (Death, Other)
  Sender: FDA-Public Use
  Company Number: IL-GILEAD-2014-0122719

PATIENT
  Sex: Male

DRUGS (1)
  1. SOVALDI [Suspect]
     Active Substance: SOFOSBUVIR
     Indication: HEPATIC CANCER
     Dosage: UNK
     Route: 065

REACTIONS (2)
  - Disease complication [Fatal]
  - Hepatic cancer [Fatal]
